FAERS Safety Report 6800346-3 (Version None)
Quarter: 2010Q2

REPORT INFORMATION
  Report Type: 
  Country: None (occurrence: None)
  Receive Date: 20100616
  Receipt Date: 20100603
  Transmission Date: 20101027
  Serious: No
  Sender: FDA-Public Use
  Company Number: B0658725A

PATIENT
  Age: 68 Year
  Sex: Male

DRUGS (6)
  1. ROPINIROLE HYDROCHLORIDE [Suspect]
     Indication: PARKINSON'S DISEASE
  2. ENTACAPONE [Suspect]
     Indication: PARKINSON'S DISEASE
     Dates: start: 20060101
  3. LEVODOPA (FORMULATION UNKNOWN) (GENERIC) (LEVODOPA) [Suspect]
     Indication: PARKINSON'S DISEASE
  4. CARBIDOPA (FORMULATION UNKNOWN) (GENERIC) (CARBIDOPA) [Suspect]
     Dates: start: 20060101
  5. LEVODOPA (FORMULATION UNKNOWN) (GENERIC) [Suspect]
     Dates: start: 20070101
  6. LEVODOPA (FORMULATION UNKNOWN) (GENERIC) (LEVODOPA) [Suspect]
     Indication: PARKINSON'S DISEASE

REACTIONS (8)
  - CEREBRAL ATROPHY [None]
  - FALL [None]
  - FREEZING PHENOMENON [None]
  - HALLUCINATION, VISUAL [None]
  - HYPERSEXUALITY [None]
  - MUSCULOSKELETAL STIFFNESS [None]
  - PROGRESSIVE SUPRANUCLEAR PALSY [None]
  - STEREOTYPY [None]
